FAERS Safety Report 4665268-5 (Version None)
Quarter: 2005Q2

REPORT INFORMATION
  Report Type: 
  Country: None (occurrence: None)
  Receive Date: 20050517
  Receipt Date: 20050505
  Transmission Date: 20051028
  Serious: Yes (Other)
  Sender: FDA-Public Use
  Company Number: 2005-127501-NL

PATIENT
  Age: 42 Year
  Sex: Female

DRUGS (1)
  1. PUREGON [Suspect]
     Indication: IN VITRO FERTILISATION
     Dosage: USED FOR APPROXIMATELY 7-10 DAYS
     Dates: start: 20050127

REACTIONS (2)
  - ABORTION SPONTANEOUS INCOMPLETE [None]
  - DRUG EXPOSURE DURING PREGNANCY [None]
